FAERS Safety Report 19158682 (Version 1)
Quarter: 2021Q2

REPORT INFORMATION
  Report Type: Spontaneous
  Country: TW (occurrence: TW)
  Receive Date: 20210420
  Receipt Date: 20210420
  Transmission Date: 20210717
  Serious: Yes (Death, Other)
  Sender: FDA-Public Use
  Company Number: TW-PFIZER INC-2021336775

PATIENT
  Age: 76 Year
  Sex: Female

DRUGS (1)
  1. ADRIAMYCIN [Suspect]
     Active Substance: DOXORUBICIN HYDROCHLORIDE
     Indication: HEPATOCELLULAR CARCINOMA
     Dosage: 20 MG (TRANSARTERIAL)
     Route: 013

REACTIONS (4)
  - Acute kidney injury [Recovering/Resolving]
  - Sepsis [Fatal]
  - Tumour lysis syndrome [Fatal]
  - Pneumonia aspiration [Fatal]
